FAERS Safety Report 21317993 (Version 1)
Quarter: 2022Q3

REPORT INFORMATION
  Report Type: Spontaneous
  Country: US (occurrence: US)
  Receive Date: 20220911
  Receipt Date: 20220911
  Transmission Date: 20221027
  Serious: No
  Sender: FDA-Public Use
  Company Number: US-SA-SAC20220826000681

PATIENT
  Age: 59 Year
  Sex: Female

DRUGS (1)
  1. DUPIXENT [Suspect]
     Active Substance: DUPILUMAB
     Indication: Dermatitis atopic
     Dosage: 300 MG
     Route: 058
     Dates: start: 202202

REACTIONS (6)
  - Injection site scar [Unknown]
  - Dry eye [Unknown]
  - Lack of injection site rotation [Unknown]
  - Incorrect dose administered [Unknown]
  - Vitreous floaters [Unknown]
  - Inappropriate schedule of product administration [Unknown]
